FAERS Safety Report 6443326-2 (Version None)
Quarter: 2009Q4

REPORT INFORMATION
  Report Type: 
  Country: None (occurrence: None)
  Receive Date: 20091113
  Receipt Date: 20091104
  Transmission Date: 20100525
  Serious: Yes (Death, Hospitalization)
  Sender: FDA-Public Use
  Company Number: 2009AC000355

PATIENT
  Sex: Female

DRUGS (5)
  1. DIGOXIN [Suspect]
     Dosage: 0.125 MG QD PO
     Route: 048
  2. COREG [Concomitant]
  3. COUMADIN [Concomitant]
  4. DEMADEXC [Concomitant]
  5. POTASSIUM CHLORIDE [Concomitant]

REACTIONS (9)
  - ATRIAL FIBRILLATION [None]
  - CONGESTIVE CARDIOMYOPATHY [None]
  - ECCHYMOSIS [None]
  - ECONOMIC PROBLEM [None]
  - FATIGUE [None]
  - INJURY [None]
  - SURGERY [None]
  - UNEVALUABLE EVENT [None]
  - WOUND [None]
